FAERS Safety Report 5202236-9 (Version None)
Quarter: 2007Q1

REPORT INFORMATION
  Report Type: 
  Country: None (occurrence: None)
  Receive Date: 20070109
  Receipt Date: 20061230
  Transmission Date: 20070707
  Serious: Yes (Other)
  Sender: FDA-Public Use
  Company Number: US-JNJFOC-20070100376

PATIENT
  Age: 23 Year
  Sex: Female

DRUGS (4)
  1. PEPCID AC [Suspect]
  2. PEPCID AC [Suspect]
     Indication: ABDOMINAL PAIN
     Dosage: DOSE UNKNOWN
  3. PEPTO BISMOL [Concomitant]
     Indication: DRUG USE FOR UNKNOWN INDICATION
     Dosage: ONE TABLET
  4. ORTHO EVRA [Concomitant]

REACTIONS (4)
  - DIARRHOEA [None]
  - PALLOR [None]
  - UNRESPONSIVE TO STIMULI [None]
  - VOMITING [None]
